FAERS Safety Report 8437866-4 (Version None)
Quarter: 2012Q2

REPORT INFORMATION
  Report Type: 
  Country: None (occurrence: None)
  Receive Date: 20120614
  Receipt Date: 20120517
  Transmission Date: 20120825
  Serious: No
  Sender: FDA-Public Use
  Company Number: US-AMGEN-USASP2012031386

PATIENT
  Age: 73 Year
  Sex: Female

DRUGS (5)
  1. PRILOSEC [Concomitant]
     Indication: GASTROOESOPHAGEAL REFLUX DISEASE
     Dosage: UNK UNK, BID
  2. PROLIA [Suspect]
     Indication: OSTEOPENIA
     Dosage: 60 MG, Q6MO
     Dates: start: 20111229
  3. VITAMIN D [Concomitant]
     Dosage: UNK UNK, QD
  4. BENICAR [Concomitant]
  5. LOTREL [Concomitant]

REACTIONS (1)
  - FLATULENCE [None]
